FAERS Safety Report 4303596-3 (Version None)
Quarter: 2004Q1

REPORT INFORMATION
  Report Type: 
  Country: None (occurrence: None)
  Receive Date: 20040224
  Receipt Date: 20040224
  Transmission Date: 20041129
  Serious: Yes (Hospitalization)
  Sender: FDA-Public Use
  Company Number: None

PATIENT
  Age: 67 Year
  Sex: Female
  Weight: 103.9 kg

DRUGS (5)
  1. TAXOL [Suspect]
     Indication: BREAST CANCER METASTATIC
     Dosage: 166 MG WEEKLY IV
     Route: 042
     Dates: start: 20031114, end: 20031114
  2. GLUTAMINE [Suspect]
     Dosage: 100 GRAMS TID ORAL
     Route: 048
     Dates: start: 20031114, end: 20031114
  3. VASOTEC [Concomitant]
  4. PERCOCET [Concomitant]
  5. ZOMETA [Concomitant]

REACTIONS (7)
  - ASTHENIA [None]
  - BALANCE DISORDER [None]
  - CONFUSIONAL STATE [None]
  - DEHYDRATION [None]
  - DIZZINESS [None]
  - FEBRILE NEUTROPENIA [None]
  - URINARY TRACT INFECTION [None]
